FAERS Safety Report 12318363 (Version 1)
Quarter: 2016Q2

REPORT INFORMATION
  Report Type: Report from Study
  Country: US (occurrence: US)
  Receive Date: 20160429
  Receipt Date: 20160429
  Transmission Date: 20160815
  Serious: No
  Sender: FDA-Public Use
  Company Number: US-SA-2016SA023176

PATIENT

DRUGS (1)
  1. LEUKINE [Suspect]
     Active Substance: SARGRAMOSTIM
     Indication: PARKINSON^S DISEASE
     Route: 058

REACTIONS (2)
  - Hypersensitivity vasculitis [Unknown]
  - Urticaria [Unknown]
